FAERS Safety Report 7186122-3 (Version None)
Quarter: 2010Q4

REPORT INFORMATION
  Report Type: 
  Country: None (occurrence: None)
  Receive Date: 20101222
  Receipt Date: 20101215
  Transmission Date: 20110411
  Serious: Yes (Other)
  Sender: FDA-Public Use
  Company Number: JP-PFIZER INC-2010172491

PATIENT
  Age: 60 Year
  Sex: Female

DRUGS (6)
  1. METHOTREXATE SODIUM [Suspect]
     Indication: DIFFUSE LARGE B-CELL LYMPHOMA
     Dosage: 1 G/M2
  2. METHOTREXATE SODIUM [Suspect]
     Dosage: 15 MG
  3. METHYLPREDNISOLONE [Suspect]
     Indication: DIFFUSE LARGE B-CELL LYMPHOMA
     Dosage: 120 MG/M2 EVERY OTHER DAY
  4. LEUCOVORIN [Suspect]
     Dosage: 25 MG EVERY 6 HOURS FOR 3 DAYS
  5. RANIMUSTINE [Suspect]
     Indication: DIFFUSE LARGE B-CELL LYMPHOMA
  6. CYTARABINE [Suspect]
     Indication: DIFFUSE LARGE B-CELL LYMPHOMA
     Dosage: 40MG

REACTIONS (1)
  - COGNITIVE DISORDER [None]
